FAERS Safety Report 4807548-6 (Version None)
Quarter: 2005Q4

REPORT INFORMATION
  Report Type: 
  Country: None (occurrence: None)
  Receive Date: 20051024
  Receipt Date: 20050224
  Transmission Date: 20060501
  Serious: Yes (Hospitalization, Disabling)
  Sender: FDA-Public Use
  Company Number: US-ROCHE-396767

PATIENT
  Age: 17 Year
  Sex: Male
  Weight: 73.5 kg

DRUGS (2)
  1. ACCUTANE [Suspect]
     Dosage: TAKEN DAILY.
     Route: 048
     Dates: start: 20010110, end: 20010614
  2. ACCUTANE [Suspect]
     Route: 048
     Dates: start: 20010614, end: 20010720

REACTIONS (6)
  - COLITIS ULCERATIVE [None]
  - GASTROINTESTINAL DISORDER [None]
  - ILL-DEFINED DISORDER [None]
  - INFLAMMATORY BOWEL DISEASE [None]
  - INTESTINAL HAEMORRHAGE [None]
  - RECTAL HAEMORRHAGE [None]
